FAERS Safety Report 23397775 (Version 1)
Quarter: 2024Q1

REPORT INFORMATION
  Report Type: Spontaneous
  Country: IN (occurrence: IN)
  Receive Date: 20240112
  Receipt Date: 20240112
  Transmission Date: 20240410
  Serious: Yes (Other)
  Sender: FDA-Public Use
  Company Number: IN-PFIZER INC-PV202200022874

PATIENT
  Age: 65 Year
  Sex: Female

DRUGS (7)
  1. LORLATINIB [Suspect]
     Active Substance: LORLATINIB
     Indication: Non-small cell lung cancer metastatic
     Dosage: 100 MG, 1X/DAY
     Route: 048
  2. LORLATINIB [Suspect]
     Active Substance: LORLATINIB
     Dosage: 100 MG
     Route: 048
     Dates: start: 20231009
  3. LORLATINIB [Suspect]
     Active Substance: LORLATINIB
     Dosage: 100 MG, 1X/DAY (X3 MONTHS)
     Route: 048
  4. ROSUVASTATIN CALCIUM [Concomitant]
     Active Substance: ROSUVASTATIN CALCIUM
     Dosage: 20 MG, 1X/DAY (HS X 3 MONTHS)
  5. NIMESULIDE [Concomitant]
     Active Substance: NIMESULIDE
     Dosage: 1 DF, 1X/DAY X 3 MONTHS
  6. CABAPAN [Concomitant]
     Dosage: 300 MG, 1X/DAY (HS X 3 MONTHS)
  7. PAN [Concomitant]
     Dosage: 40 MG, 1X/DAY X 3 MONTHS

REACTIONS (20)
  - Joint destruction [Unknown]
  - Blood potassium increased [Unknown]
  - Heart rate increased [Unknown]
  - Malaise [Unknown]
  - General physical health deterioration [Unknown]
  - Haemoglobin decreased [Unknown]
  - Weight increased [Unknown]
  - Blood pressure increased [Unknown]
  - Pleural thickening [Unknown]
  - Pleural effusion [Unknown]
  - Blood alkaline phosphatase increased [Unknown]
  - Blood urea increased [Unknown]
  - Neoplasm progression [Unknown]
  - Blood triglycerides increased [Unknown]
  - Blood cholesterol increased [Unknown]
  - Weight abnormal [Unknown]
  - Weight decreased [Unknown]
  - Alanine aminotransferase increased [Unknown]
  - Blood creatinine decreased [Unknown]
  - Joint effusion [Unknown]

NARRATIVE: CASE EVENT DATE: 20221105
